FAERS Safety Report 16499448 (Version 2)
Quarter: 2019Q3

REPORT INFORMATION
  Report Type: Report from Study
  Country: US (occurrence: US)
  Receive Date: 20190701
  Receipt Date: 20190717
  Transmission Date: 20191004
  Serious: Yes (Death, Hospitalization, Other)
  Sender: FDA-Public Use
  Company Number: US-ROCHE-2344077

PATIENT
  Age: 70 Year
  Sex: Female
  Weight: 81.8 kg

DRUGS (3)
  1. BEVACIZUMAB. [Suspect]
     Active Substance: BEVACIZUMAB
     Indication: OVARIAN CANCER
     Dosage: OVER 90 MINUTES ON DAYS 1 AND 15?ON 09/MAY/2019, SHE RECEIVED THE MOST RECENT DOSE OF BEVACIZUMAB.
     Route: 042
     Dates: start: 20181108, end: 20190613
  2. ATEZOLIZUMAB. [Suspect]
     Active Substance: ATEZOLIZUMAB
     Indication: OVARIAN CANCER
     Dosage: OVER 1 HOUR ON DAYS 1 AND 15?ON 09/MAY/2019, SHE RECEIVED THE MOST RECENT DOSE OF ATEZOLIZUMAB.
     Route: 042
     Dates: start: 20181108, end: 20190613
  3. PEGYLATED LIPOSOMAL DOXORUBICIN [Suspect]
     Active Substance: DOXORUBICIN
     Indication: OVARIAN CANCER
     Dosage: OVER 1 HOUR ON DAY 1?ON 25/APR/2019, SHE RECEIVED THE MOST RECENT DOSE OF PEGYLATED LIPOSOMAL DOXORU
     Route: 042
     Dates: start: 20181108, end: 20190613

REACTIONS (7)
  - Seizure [Recovered/Resolved]
  - Pneumonitis [Not Recovered/Not Resolved]
  - Respiratory failure [Not Recovered/Not Resolved]
  - Acute kidney injury [Not Recovered/Not Resolved]
  - Sepsis [Not Recovered/Not Resolved]
  - Hypertension [Not Recovered/Not Resolved]
  - Gastric perforation [Fatal]

NARRATIVE: CASE EVENT DATE: 20190513
